FAERS Safety Report 24807893 (Version 1)
Quarter: 2025Q1

REPORT INFORMATION
  Report Type: Spontaneous
  Country: US (occurrence: US)
  Receive Date: 20250106
  Receipt Date: 20250106
  Transmission Date: 20250408
  Serious: No
  Sender: AMGEN
  Company Number: US-AMGEN-USASP2024256881

PATIENT
  Age: 75 Year
  Sex: Female

DRUGS (2)
  1. PREDNISONE [Suspect]
     Active Substance: PREDNISONE
     Indication: Hepatitis
     Dosage: 2 MILLIGRAM/KILOGRAM, QD
     Route: 048
  2. PEMBROLIZUMAB [Concomitant]
     Active Substance: PEMBROLIZUMAB
     Indication: Lung adenocarcinoma

REACTIONS (3)
  - Therapeutic product effect incomplete [Unknown]
  - Hepatic enzyme increased [Unknown]
  - Off label use [Unknown]
